FAERS Safety Report 6355859-8 (Version None)
Quarter: 2009Q3

REPORT INFORMATION
  Report Type: 
  Country: None (occurrence: None)
  Receive Date: 20090910
  Receipt Date: 20090910
  Transmission Date: 20100115
  Serious: Yes (Hospitalization)
  Sender: FDA-Public Use
  Company Number: None

PATIENT
  Sex: Female
  Weight: 136.8 kg

DRUGS (2)
  1. ONTAK [Suspect]
     Dosage: 9600 MCG
  2. RITUXIMAB (MOAB C2B8 ANTI CD2O, CHIMERIC) [Suspect]
     Dosage: 1936 MCG

REACTIONS (5)
  - ASTHENIA [None]
  - BLOOD ALBUMIN DECREASED [None]
  - MYALGIA [None]
  - MYOSITIS [None]
  - PAIN [None]
